FAERS Safety Report 6182025-1 (Version None)
Quarter: 2009Q2

REPORT INFORMATION
  Report Type: 
  Country: None (occurrence: None)
  Receive Date: 20090505
  Receipt Date: 20090420
  Transmission Date: 20091009
  Serious: Yes (Hospitalization)
  Sender: FDA-Public Use
  Company Number: 2009S1006951

PATIENT
  Sex: Male
  Weight: 100 kg

DRUGS (6)
  1. ALLOPURINOL [Suspect]
     Indication: DRUG USE FOR UNKNOWN INDICATION
     Dosage: 30 MG; DAILY; ORAL
     Route: 048
     Dates: end: 20090317
  2. BISOPROLOL FUMARATE [Concomitant]
  3. CLOPIDOGREL [Concomitant]
  4. CO-AMOXICLAV [Concomitant]
  5. RAMIPRIL [Concomitant]
  6. SIMVASTATIN [Concomitant]

REACTIONS (6)
  - HEPATIC ENZYME INCREASED [None]
  - LYMPHOEDEMA [None]
  - PYREXIA [None]
  - RASH [None]
  - RENAL FAILURE [None]
  - WHITE BLOOD CELL COUNT DECREASED [None]
